FAERS Safety Report 16631578 (Version 1)
Quarter: 2019Q3

REPORT INFORMATION
  Report Type: Spontaneous
  Country: NO (occurrence: NO)
  Receive Date: 20190725
  Receipt Date: 20190725
  Transmission Date: 20191004
  Serious: Yes (Death, Other)
  Sender: FDA-Public Use
  Company Number: NO-MYLANLABS-2019M1069568

PATIENT
  Age: 68 Year
  Sex: Female

DRUGS (8)
  1. OPSUMIT [Concomitant]
     Active Substance: MACITENTAN
     Dosage: UNK
  2. FRAGMIN [Suspect]
     Active Substance: DALTEPARIN SODIUM
     Indication: AORTIC VALVE REPLACEMENT
     Dosage: 5000 IE/ML, UNK
     Route: 065
  3. BURINEX [Concomitant]
     Active Substance: BUMETANIDE
     Dosage: 3 MG, UNK
  4. AMBRISENTAN [Suspect]
     Active Substance: AMBRISENTAN
     Indication: PULMONARY ARTERIAL HYPERTENSION
     Dosage: UNK
     Route: 048
     Dates: start: 20121212
  5. WARFARIN [Suspect]
     Active Substance: WARFARIN
     Indication: AORTIC VALVE REPLACEMENT
     Dosage: UNK
     Route: 048
  6. UPTRAVI [Suspect]
     Active Substance: SELEXIPAG
     Indication: PULMONARY ARTERIAL HYPERTENSION
     Dosage: 2 UNK, QD (UNK, BID)
     Route: 048
     Dates: start: 20160909
  7. REVATIO [Suspect]
     Active Substance: SILDENAFIL CITRATE
     Indication: PULMONARY ARTERIAL HYPERTENSION
     Dosage: UNK
     Route: 048
     Dates: start: 20120404
  8. SOMAC [Concomitant]
     Active Substance: PANTOPRAZOLE SODIUM
     Dosage: 40 MG, QD

REACTIONS (6)
  - Pulmonary arterial hypertension [Fatal]
  - Gastric antral vascular ectasia [Fatal]
  - Anaemia [Fatal]
  - Condition aggravated [Fatal]
  - Gastrointestinal haemorrhage [Fatal]
  - Disease progression [Fatal]
